FAERS Safety Report 5576749-4 (Version None)
Quarter: 2007Q4

REPORT INFORMATION
  Report Type: 
  Country: None (occurrence: None)
  Receive Date: 20071228
  Receipt Date: 20071218
  Transmission Date: 20080405
  Serious: Yes (Death)
  Sender: FDA-Public Use
  Company Number: US-JNJFOC-20071204799

PATIENT
  Age: 24 Year
  Sex: Female

DRUGS (4)
  1. TRAMADOL HCL [Suspect]
     Indication: HEADACHE
     Dosage: 3/4 TIMES DAILY AS NEEDED
     Route: 048
  2. CLONAZEPAM [Concomitant]
     Indication: ANXIETY
     Route: 048
  3. DEPAKOTE [Concomitant]
     Indication: ANXIETY
     Route: 048
  4. PERCOCET [Concomitant]
     Indication: PAIN
     Route: 048

REACTIONS (2)
  - COMPLETED SUICIDE [None]
  - OVERDOSE [None]
